FAERS Safety Report 8895266 (Version 1)
Quarter: 2012Q4

REPORT INFORMATION
  Report Type: 
  Country: US (occurrence: US)
  Receive Date: 20121107
  Receipt Date: 20121107
  Transmission Date: 20130627
  Serious: No
  Sender: FDA-Public Use
  Company Number: US-AMGEN-USASP2011056103

PATIENT
  Age: 51 Year
  Sex: Female

DRUGS (22)
  1. ENBREL [Suspect]
     Indication: PRODUCT USED FOR UNKNOWN INDICATION
     Dosage: 50 mg, qwk
  2. SOMA CMPD [Concomitant]
  3. LASIX [Concomitant]
     Dosage: 20 mg, UNK
  4. BENADRYL [Concomitant]
     Dosage: 25 mg, UNK
  5. METHOTREXATE [Concomitant]
     Dosage: 2.5 mg, UNK
  6. VICODIN [Concomitant]
     Dosage: UNK
  7. TRAMADOL [Concomitant]
     Dosage: 50 mg, UNK
  8. ATENOLOL [Concomitant]
     Dosage: 25 mg, UNK
  9. METOCLOPRAMIDE [Concomitant]
     Dosage: 5 mg, UNK
  10. RANITIDINE [Concomitant]
     Dosage: 75 mg, UNK
  11. VALIUM [Concomitant]
     Dosage: 2 mg, UNK
  12. FOLIC ACID [Concomitant]
     Dosage: 1 mg, UNK
  13. GLIPIZIDE [Concomitant]
     Dosage: 5 mg, UNK
  14. DIAZEPAM [Concomitant]
     Dosage: 2 mg, UNK
  15. DILTIAZEM [Concomitant]
     Dosage: 120 mg, UNK
  16. VITAMIN C [Concomitant]
  17. VITAMIN D [Concomitant]
     Dosage: 400 IU, UNK
  18. VITAMIN B COMPLEX [Concomitant]
  19. MULTIVITAMIN [Concomitant]
  20. MAGNESIUM OXIDE [Concomitant]
     Dosage: 250 mg, UNK
  21. POTASSIUM [Concomitant]
     Dosage: 25 mEq, UNK
  22. VITAMIN D3 [Concomitant]

REACTIONS (1)
  - Skin discolouration [Unknown]
